FAERS Safety Report 4493249-3 (Version None)
Quarter: 2004Q4

REPORT INFORMATION
  Report Type: 
  Country: None (occurrence: None)
  Receive Date: 20041104
  Receipt Date: 20041027
  Transmission Date: 20050328
  Serious: Yes (Death)
  Sender: FDA-Public Use
  Company Number: CH-BRISTOL-MYERS SQUIBB COMPANY-12749495

PATIENT
  Sex: Female

DRUGS (2)
  1. APROVEL [Suspect]
     Indication: HYPERTENSION
     Route: 048
     Dates: start: 20040414, end: 20040526
  2. ATENOLOL AND CHLORTHALIDONE [Concomitant]
     Dosage: DOSAGE FORM=50+12.5 MG/DAY, PREVIOUSLY TREATED WITH SAME DOSAGE FORM

REACTIONS (1)
  - MULTIPLE MYELOMA [None]
